FAERS Safety Report 8294532 (Version 6)
Quarter: 2012Q4

REPORT INFORMATION
  Report Type: 
  Country: BR (occurrence: BR)
  Receive Date: 20111216
  Receipt Date: 20121127
  Transmission Date: 20130627
  Serious: Yes (Hospitalization, Other)
  Sender: FDA-Public Use
  Company Number: PHHY2011BR87077

PATIENT
  Age: 64 Year
  Sex: Female
  Weight: 75 kg

DRUGS (12)
  1. XOLAIR [Suspect]
     Indication: ASTHMA
     Dosage: 300 mg, UNK
     Dates: start: 20100101
  2. FORASEQ [Suspect]
     Indication: ASTHMA
  3. CORTICOSTEROIDS [Concomitant]
  4. NASONEX [Concomitant]
  5. FLUIMICIL [Concomitant]
  6. BUDESONIDE [Concomitant]
  7. SPIRIVA [Concomitant]
     Dosage: UNK UKN, UNK
  8. BAMIFIX [Concomitant]
     Dosage: UNK UKN, UNK
  9. FLUIMUCIL [Concomitant]
     Dosage: UNK UKN, UNK
  10. VYTORIN [Concomitant]
     Dosage: UNK UKN, UNK
  11. OMEPRAZOL [Concomitant]
  12. PERIDAL [Concomitant]
     Dosage: UNK UKN, UNK

REACTIONS (10)
  - Asthma [Recovering/Resolving]
  - Wheezing [Recovering/Resolving]
  - Chest pain [Not Recovered/Not Resolved]
  - Dyspnoea [Recovering/Resolving]
  - Chronic obstructive pulmonary disease [Unknown]
  - Fatigue [Recovering/Resolving]
  - Weight increased [Unknown]
  - Respiratory tract infection [Unknown]
  - Abdominal distension [Unknown]
  - Malaise [Unknown]
